FAERS Safety Report 9606055 (Version 1)
Quarter: 2013Q4

REPORT INFORMATION
  Report Type: Spontaneous
  Country: US (occurrence: US)
  Receive Date: 20131008
  Receipt Date: 20131008
  Transmission Date: 20140711
  Serious: No
  Sender: FDA-Public Use
  Company Number: US-AMGEN-USASP2013040246

PATIENT
  Age: 65 Year
  Sex: Female

DRUGS (7)
  1. PROLIA [Suspect]
     Indication: OSTEOPOROSIS
     Dosage: 60 MG, UNK
     Dates: start: 20130307
  2. NEURONTIN [Concomitant]
     Dosage: 200 MG, UNK
  3. NEURONTIN [Concomitant]
     Dosage: 200 MG, QHS
  4. PRAVASTATIN [Concomitant]
  5. VITAMIN D3 [Concomitant]
     Dosage: 4000 IU, QD
  6. VITAMIN B12                        /00056201/ [Concomitant]
     Dosage: UNK UNK, QD
  7. CALCIUM [Concomitant]
     Dosage: 1000 MG, QD

REACTIONS (2)
  - Back pain [Recovered/Resolved]
  - Arthralgia [Recovered/Resolved]
